FAERS Safety Report 21964645 (Version 1)
Quarter: 2023Q1

REPORT INFORMATION
  Report Type: Spontaneous
  Country: US (occurrence: US)
  Receive Date: 20230207
  Receipt Date: 20230207
  Transmission Date: 20230417
  Serious: No
  Sender: FDA-Public Use
  Company Number: US-PURDUE PHARMA-USA-2022-0297116

PATIENT
  Sex: Female

DRUGS (1)
  1. BUTRANS [Suspect]
     Active Substance: BUPRENORPHINE
     Indication: Pain management
     Dosage: 20 MCG/HR
     Route: 062
     Dates: start: 202204, end: 202208

REACTIONS (2)
  - Application site pruritus [Unknown]
  - Application site swelling [Unknown]
